FAERS Safety Report 12479721 (Version 1)
Quarter: 2016Q2

REPORT INFORMATION
  Report Type: Spontaneous
  Country: US (occurrence: US)
  Receive Date: 20160620
  Receipt Date: 20160620
  Transmission Date: 20160815
  Serious: No
  Sender: FDA-Public Use
  Company Number: US-PFIZER INC-2016277311

PATIENT
  Age: 61 Year
  Sex: Female
  Weight: 63.39 kg

DRUGS (16)
  1. IPRATROPIUM BROMIDE. [Concomitant]
     Active Substance: IPRATROPIUM BROMIDE
     Dosage: UNK UNK, AS NEEDED (1 SOLUTION INHALATION FOUR TIMES A DAY)
  2. ACETAMINOPHEN W/HYDROCODONE [Concomitant]
     Active Substance: ACETAMINOPHEN\HYDROCODONE
     Dosage: 1 DF, AS NEEDED BID (HYDROCODONE 5MG, PARACETAMOL 325 MG)
     Route: 048
     Dates: start: 20160418
  3. ACETAMINOPHEN W/HYDROCODONE [Concomitant]
     Active Substance: ACETAMINOPHEN\HYDROCODONE
     Dosage: 1 UNK, UNK
  4. FASLODEX [Concomitant]
     Active Substance: FULVESTRANT
     Dosage: 500 MG, DAILY (FOR 1 DAY, EVERY 28 DAYS)
     Route: 030
     Dates: start: 20160222
  5. SOTALOL HCL [Concomitant]
     Active Substance: SOTALOL
     Dosage: 80 MG, 2X/DAY
     Route: 048
  6. COUMADIN [Concomitant]
     Active Substance: WARFARIN SODIUM
     Dosage: 1 MG, DAILY
     Route: 048
  7. POTASSIUM CHLORIDE. [Concomitant]
     Active Substance: POTASSIUM CHLORIDE
     Dosage: 10 MEQ, DAILY
     Route: 048
     Dates: start: 20130603
  8. ALBUTEROL SULFATE. [Concomitant]
     Active Substance: ALBUTEROL SULFATE
     Dosage: UNK, AS NEEDED (0.63 MG/3ML FOUR TIMES A DAY)
     Route: 045
  9. SPIRONOLACTONE. [Concomitant]
     Active Substance: SPIRONOLACTONE
     Dosage: 25 MG, DAILY
     Route: 048
  10. COUMADIN [Concomitant]
     Active Substance: WARFARIN SODIUM
     Dosage: 3 MG, UNK
     Route: 048
  11. LACTULOSE. [Concomitant]
     Active Substance: LACTULOSE
     Dosage: UNK, 2X/DAY
     Route: 048
  12. XGEVA [Concomitant]
     Active Substance: DENOSUMAB
     Dosage: 120 MG, UNK (ONCE)
     Route: 058
     Dates: start: 20120605
  13. IBRANCE [Suspect]
     Active Substance: PALBOCICLIB
     Indication: BREAST CANCER METASTATIC
     Dosage: 125 MG, DAILY
     Route: 048
     Dates: start: 20160216
  14. COUMADIN [Concomitant]
     Active Substance: WARFARIN SODIUM
     Indication: ATRIAL FIBRILLATION
     Dosage: 2.5 MG, UNK
     Route: 048
     Dates: start: 20151207
  15. WARFARIN SODIUM. [Concomitant]
     Active Substance: WARFARIN SODIUM
     Indication: ATRIAL FIBRILLATION
     Dosage: 5 MG, DAILY
     Route: 048
     Dates: start: 20160215
  16. TUMS [Concomitant]
     Active Substance: CALCIUM CARBONATE
     Dosage: 1 DF, 2X/DAY
     Route: 048

REACTIONS (3)
  - Bursitis [Unknown]
  - Product use issue [Unknown]
  - Arthritis [Unknown]

NARRATIVE: CASE EVENT DATE: 201605
